FAERS Safety Report 21331097 (Version 1)
Quarter: 2022Q3

REPORT INFORMATION
  Report Type: Spontaneous
  Country: US (occurrence: None)
  Receive Date: 20220914
  Receipt Date: 20220914
  Transmission Date: 20221026
  Serious: No
  Sender: FDA-Public Use
  Company Number: US-ROCHE-3104015

PATIENT
  Age: 35 Year
  Sex: Female
  Weight: 68.100 kg

DRUGS (2)
  1. XOFLUZA [Suspect]
     Active Substance: BALOXAVIR MARBOXIL
     Indication: Influenza
     Route: 048
     Dates: start: 20220523, end: 20220523
  2. UNISOM [DOXYLAMINE SUCCINATE] [Concomitant]
     Route: 048
     Dates: start: 2020

REACTIONS (2)
  - Abdominal pain upper [Not Recovered/Not Resolved]
  - Insomnia [Not Recovered/Not Resolved]

NARRATIVE: CASE EVENT DATE: 20220523
